FAERS Safety Report 6522259-7 (Version None)
Quarter: 2009Q4

REPORT INFORMATION
  Report Type: 
  Country: None (occurrence: None)
  Receive Date: 20091230
  Receipt Date: 20091223
  Transmission Date: 20100525
  Serious: Yes (Other)
  Sender: FDA-Public Use
  Company Number: GXKR2009KW13817

PATIENT
  Age: 1 Year
  Sex: Female

DRUGS (2)
  1. LEVETIRACETAM [Suspect]
     Indication: PARTIAL SEIZURES
     Dosage: 74.38 MG/KG/DAY (MAXIMUM DOSE)
     Route: 065
  2. PHENOBARBITAL [Concomitant]
     Route: 065

REACTIONS (2)
  - COMPLEX PARTIAL SEIZURES [None]
  - CONDITION AGGRAVATED [None]
